FAERS Safety Report 10314116 (Version 2)
Quarter: 2014Q4

REPORT INFORMATION
  Report Type: Spontaneous
  Country: JP (occurrence: JP)
  Receive Date: 20140718
  Receipt Date: 20141222
  Transmission Date: 20150528
  Serious: Yes (Death)
  Sender: FDA-Public Use
  Company Number: JP-TEVA-494320ISR

PATIENT
  Age: 64 Year
  Sex: Male
  Weight: 54 kg

DRUGS (23)
  1. OXYCODONE HYDROCHLORIDE. [Concomitant]
     Active Substance: OXYCODONE HYDROCHLORIDE
     Indication: BREAKTHROUGH PAIN
     Route: 048
     Dates: end: 20140701
  2. E-FEN BUCCAL(FENTANYL CITRATE) [Suspect]
     Active Substance: FENTANYL CITRATE
     Indication: BREAKTHROUGH PAIN
     Dosage: 200 MICROGRAM DAILY;
     Route: 002
     Dates: start: 20140610, end: 20140610
  3. LOXONIN [Concomitant]
     Active Substance: LOXOPROFEN SODIUM
     Indication: CANCER PAIN
     Route: 048
     Dates: end: 20140625
  4. ACETAMINOPHEN. [Concomitant]
     Active Substance: ACETAMINOPHEN
     Indication: CANCER PAIN
     Route: 048
     Dates: end: 20140701
  5. MAINTATE [Concomitant]
     Active Substance: BISOPROLOL FUMARATE
     Indication: ATRIAL FIBRILLATION
     Route: 048
     Dates: end: 20140624
  6. E-FEN BUCCAL(FENTANYL CITRATE) [Suspect]
     Active Substance: FENTANYL CITRATE
     Dosage: 200-800 MICROGRAM
     Route: 002
     Dates: start: 20140612, end: 20140701
  7. FENTOS (FENTANYL CITRATE) [Concomitant]
     Dates: start: 20140621, end: 20140703
  8. DECADRON [Concomitant]
     Active Substance: DEXAMETHASONE
     Route: 048
     Dates: start: 20140619, end: 20140625
  9. E-FEN BUCCAL(FENTANYL CITRATE) [Suspect]
     Active Substance: FENTANYL CITRATE
     Dosage: 300 MICROGRAM DAILY;
     Route: 002
     Dates: start: 20140611, end: 20140611
  10. LYRICA [Concomitant]
     Active Substance: PREGABALIN
     Indication: CANCER PAIN
     Route: 048
     Dates: start: 20140626, end: 20140701
  11. TAKEPRON [Concomitant]
     Active Substance: LANSOPRAZOLE
     Indication: CHRONIC GASTRITIS
     Route: 048
     Dates: start: 20140626, end: 20140701
  12. ZYPREXA [Concomitant]
     Active Substance: OLANZAPINE
     Route: 048
     Dates: end: 20140609
  13. XARELTO [Concomitant]
     Active Substance: RIVAROXABAN
     Indication: ATRIAL FIBRILLATION
     Route: 048
     Dates: end: 20140624
  14. FENTOS (FENTANYL CITRATE) [Concomitant]
     Dates: start: 20140616, end: 20140620
  15. ZOLPIDEM TARTRATE OD [Concomitant]
     Active Substance: ZOLPIDEM TARTRATE
     Indication: INSOMNIA
     Route: 048
     Dates: start: 20140612, end: 20140701
  16. ROZEREM [Concomitant]
     Active Substance: RAMELTEON
     Indication: INSOMNIA
     Route: 048
     Dates: start: 20140603, end: 20140701
  17. SEROQUEL [Concomitant]
     Active Substance: QUETIAPINE FUMARATE
     Route: 048
     Dates: start: 20140610, end: 20140701
  18. DECADRON [Concomitant]
     Active Substance: DEXAMETHASONE
     Indication: CHRONIC GASTRITIS
     Route: 048
     Dates: start: 20140604, end: 20140618
  19. PRIMPERAN [Concomitant]
     Active Substance: METOCLOPRAMIDE HYDROCHLORIDE
     Indication: CHRONIC GASTRITIS
     Route: 041
     Dates: start: 20140605, end: 20140608
  20. FENTOS (FENTANYL CITRATE) [Concomitant]
     Indication: CANCER PAIN
     Dates: end: 20140615
  21. CELECOX [Concomitant]
     Active Substance: CELECOXIB
     Indication: CANCER PAIN
     Route: 048
     Dates: start: 20140626, end: 20140701
  22. FAMOTIDINE D [Concomitant]
     Active Substance: FAMOTIDINE
     Indication: CHRONIC GASTRITIS
     Route: 048
     Dates: end: 20140625
  23. DECADRON [Concomitant]
     Active Substance: DEXAMETHASONE
     Route: 048
     Dates: start: 20140626, end: 20140701

REACTIONS (1)
  - Bladder cancer [Fatal]

NARRATIVE: CASE EVENT DATE: 20140703
